FAERS Safety Report 12295295 (Version 1)
Quarter: 2016Q2

REPORT INFORMATION
  Report Type: Spontaneous
  Country: US (occurrence: US)
  Receive Date: 20160422
  Receipt Date: 20160422
  Transmission Date: 20160815
  Serious: Yes (Other)
  Sender: FDA-Public Use
  Company Number: US-BRISTOL-MYERS SQUIBB COMPANY-BMS-2016-027605

PATIENT
  Age: 58 Year
  Sex: Male

DRUGS (1)
  1. EMPLICITI [Suspect]
     Active Substance: ELOTUZUMAB
     Indication: PRODUCT USED FOR UNKNOWN INDICATION
     Dosage: 60 ML, UNK
     Route: 042

REACTIONS (5)
  - Paraesthesia oral [Unknown]
  - Hypoaesthesia oral [Unknown]
  - Angioedema [Unknown]
  - Upper respiratory tract congestion [Unknown]
  - Blood calcium decreased [Unknown]
